FAERS Safety Report 17805008 (Version 3)
Quarter: 2021Q2

REPORT INFORMATION
  Report Type: Spontaneous
  Country: CA (occurrence: CA)
  Receive Date: 20200520
  Receipt Date: 20210524
  Transmission Date: 20210716
  Serious: Yes (Other)
  Sender: FDA-Public Use
  Company Number: CA-AUROBINDO-AUR-APL-2020-025052

PATIENT
  Age: 56 Year
  Sex: Male

DRUGS (16)
  1. MELPHALAN. [Suspect]
     Active Substance: MELPHALAN
     Indication: AMYLOIDOSIS
     Dosage: UNK
     Route: 065
  2. APO?DEXAMETHASONE [Suspect]
     Active Substance: DEXAMETHASONE
     Indication: AMYLOIDOSIS
     Dosage: UNK
     Route: 065
  3. BORTEZOMIB. [Suspect]
     Active Substance: BORTEZOMIB
     Indication: BONE MARROW CONDITIONING REGIMEN
  4. PROCYTOX [Suspect]
     Active Substance: CYCLOPHOSPHAMIDE
     Indication: AMYLOIDOSIS
     Dosage: UNK, CYCLICAL
     Route: 065
  5. MELPHALAN. [Concomitant]
     Active Substance: MELPHALAN
     Indication: PRODUCT USED FOR UNKNOWN INDICATION
     Dosage: UNK
     Route: 065
  6. PROCYTOX [Suspect]
     Active Substance: CYCLOPHOSPHAMIDE
     Indication: B-CELL LYMPHOMA
     Dosage: UNK
     Route: 065
  7. PROCYTOX [Suspect]
     Active Substance: CYCLOPHOSPHAMIDE
     Dosage: UNK
     Route: 065
  8. BORTEZOMIB. [Suspect]
     Active Substance: BORTEZOMIB
     Indication: AMYLOIDOSIS
     Dosage: UNK
     Route: 065
  9. PREDNISONE. [Concomitant]
     Active Substance: PREDNISONE
     Indication: PRODUCT USED FOR UNKNOWN INDICATION
     Dosage: 1 MILLIGRAM/KILOGRAM
     Route: 065
  10. MELPHALAN. [Suspect]
     Active Substance: MELPHALAN
     Indication: BONE MARROW CONDITIONING REGIMEN
     Dosage: UNK
     Route: 065
  11. DEXAMETHASONE. [Suspect]
     Active Substance: DEXAMETHASONE
     Indication: AMYLOIDOSIS
     Dosage: UNK
     Route: 065
  12. DEXAMETHASONE. [Suspect]
     Active Substance: DEXAMETHASONE
     Indication: B-CELL LYMPHOMA
     Dosage: UNK, CYCLICAL
     Route: 065
  13. DEXAMETHASONE. [Suspect]
     Active Substance: DEXAMETHASONE
     Dosage: UNK
     Route: 065
  14. MELPHALAN. [Suspect]
     Active Substance: MELPHALAN
     Indication: B-CELL LYMPHOMA
     Dosage: UNK
     Route: 065
  15. BORTEZOMIB. [Suspect]
     Active Substance: BORTEZOMIB
     Indication: B-CELL LYMPHOMA
     Dosage: UNK, CYCLICAL
     Route: 065
  16. VELCADE [Suspect]
     Active Substance: BORTEZOMIB
     Indication: AMYLOIDOSIS
     Dosage: UNK, CYCLICAL, SINGLE USE VIAL
     Route: 042

REACTIONS (12)
  - Off label use [Recovered/Resolved]
  - Von Willebrand^s factor antigen decreased [Recovered/Resolved]
  - Epistaxis [Recovered/Resolved]
  - Rash erythematous [Recovered/Resolved]
  - Monoclonal gammopathy [Recovered/Resolved]
  - Coagulation factor VIII level decreased [Recovered/Resolved]
  - Product use in unapproved indication [Unknown]
  - Haemoglobin decreased [Recovered/Resolved]
  - Activated partial thromboplastin time prolonged [Recovered/Resolved]
  - Platelet count decreased [Recovered/Resolved]
  - Thrombocytopenia [Recovered/Resolved]
  - Acquired Von Willebrand^s disease [Recovered/Resolved]
